FAERS Safety Report 15803132 (Version 2)
Quarter: 2019Q1

REPORT INFORMATION
  Report Type: Spontaneous
  Country: US (occurrence: US)
  Receive Date: 20190109
  Receipt Date: 20190111
  Transmission Date: 20190417
  Serious: Yes (Other)
  Sender: FDA-Public Use
  Company Number: US-PFIZER INC-2019009738

PATIENT
  Age: 74 Year
  Sex: Female
  Weight: 111.1 kg

DRUGS (1)
  1. IBRANCE [Suspect]
     Active Substance: PALBOCICLIB
     Indication: BREAST CANCER STAGE IV
     Dosage: 100 MG, 1X/DAY
     Route: 048
     Dates: start: 201812, end: 201812

REACTIONS (3)
  - Oropharyngeal blistering [Recovered/Resolved]
  - Tongue blistering [Recovered/Resolved]
  - Oral mucosal blistering [Recovered/Resolved]

NARRATIVE: CASE EVENT DATE: 201812
